FAERS Safety Report 14564787 (Version 1)
Quarter: 2018Q1

REPORT INFORMATION
  Report Type: Spontaneous
  Country: ZA (occurrence: ZA)
  Receive Date: 20180223
  Receipt Date: 20180223
  Transmission Date: 20180509
  Serious: Yes (Other)
  Sender: FDA-Public Use
  Company Number: ZA-CIPLA (EU) LIMITED-2018ZA06344

PATIENT

DRUGS (15)
  1. AMLODIPINE/VALSARTAN [Suspect]
     Active Substance: AMLODIPINE\VALSARTAN
     Indication: BLOOD PRESSURE ABNORMAL
     Dosage: 5/160 MG, QD
     Route: 065
  2. RIDAQ [Suspect]
     Active Substance: HYDROCHLOROTHIAZIDE
     Indication: BLOOD PRESSURE ABNORMAL
     Dosage: 12.5 MG, DAILY
     Route: 065
  3. SPIRACTIN                          /00006201/ [Suspect]
     Active Substance: SPIRONOLACTONE
     Indication: BLOOD PRESSURE ABNORMAL
     Dosage: 25 MG, QD, IN MORNING
     Route: 065
  4. OLANZAPINE. [Suspect]
     Active Substance: OLANZAPINE
     Indication: SLEEP DISORDER
     Dosage: 10 MG, QD
     Route: 065
  5. DONEPEZIL. [Suspect]
     Active Substance: DONEPEZIL
     Indication: PRODUCT USED FOR UNKNOWN INDICATION
     Dosage: UNK
     Route: 065
  6. MEMANTINE HYDROCHLORIDE. [Suspect]
     Active Substance: MEMANTINE HYDROCHLORIDE
     Indication: DEMENTIA ALZHEIMER^S TYPE
     Dosage: 10 MG, BID
     Route: 065
  7. VENLAFAXINE [Suspect]
     Active Substance: VENLAFAXINE HYDROCHLORIDE
     Indication: DEPRESSION
     Dosage: 75 MG, QD, IN MORNING
     Route: 065
  8. XANOR [Suspect]
     Active Substance: ALPRAZOLAM
     Indication: ANXIETY
     Dosage: 0.25 MG, QD, AT LUNCH TIME
     Route: 065
  9. BILOCOR [Suspect]
     Active Substance: BISOPROLOL FUMARATE
     Indication: BLOOD PRESSURE ABNORMAL
     Dosage: 5 MG, QD, IN MORNING
     Route: 065
  10. ASPEN TRAZODONE [Suspect]
     Active Substance: TRAZODONE HYDROCHLORIDE
     Indication: SLEEP DISORDER
     Dosage: 100 MG, QD, AT NIGHT
     Route: 065
  11. OLANZAPINE. [Suspect]
     Active Substance: OLANZAPINE
     Indication: MOOD SWINGS
  12. RISPERIDONE. [Suspect]
     Active Substance: RISPERIDONE
     Indication: MOOD SWINGS
     Dosage: 0.5 MG IN  MORNING,1 MG AT LUNCH TIME
     Route: 065
  13. XANOR [Suspect]
     Active Substance: ALPRAZOLAM
     Indication: AGGRESSION
  14. XANOR [Suspect]
     Active Substance: ALPRAZOLAM
     Indication: RESTLESSNESS
  15. ECOTRIN [Suspect]
     Active Substance: ASPIRIN
     Indication: BLOOD PRESSURE ABNORMAL
     Dosage: 1 DAILY
     Route: 065

REACTIONS (10)
  - Vomiting [Recovering/Resolving]
  - Weight increased [Unknown]
  - Diarrhoea [Recovering/Resolving]
  - Peripheral swelling [Unknown]
  - Anal incontinence [Unknown]
  - Somnolence [Unknown]
  - Musculoskeletal stiffness [Unknown]
  - Pain [Unknown]
  - Urinary incontinence [Unknown]
  - Abdominal pain upper [Recovering/Resolving]
